FAERS Safety Report 16855424 (Version 5)
Quarter: 2020Q2

REPORT INFORMATION
  Report Type: Report from Study
  Country: CO (occurrence: CO)
  Receive Date: 20190926
  Receipt Date: 20200624
  Transmission Date: 20200713
  Serious: Yes (Hospitalization, Other)
  Sender: FDA-Public Use
  Company Number: PHHY2018CO060388

PATIENT
  Age: 67 Year
  Sex: Female
  Weight: 85 kg

DRUGS (5)
  1. LOSARTAN. [Suspect]
     Active Substance: LOSARTAN
     Indication: PRODUCT USED FOR UNKNOWN INDICATION
     Dosage: UNK
     Route: 065
  2. FOLIC ACID. [Concomitant]
     Active Substance: FOLIC ACID
     Indication: PRODUCT USED FOR UNKNOWN INDICATION
     Dosage: UNK
     Route: 065
  3. ACETAMINOPHEN. [Concomitant]
     Active Substance: ACETAMINOPHEN
     Indication: PRODUCT USED FOR UNKNOWN INDICATION
     Dosage: UNK
     Route: 065
  4. VIT D [Concomitant]
     Active Substance: VITAMIN D NOS
     Indication: PRODUCT USED FOR UNKNOWN INDICATION
     Dosage: UNK
     Route: 065
  5. VOTRIENT [Suspect]
     Active Substance: PAZOPANIB HYDROCHLORIDE
     Indication: METASTATIC RENAL CELL CARCINOMA
     Dosage: 800 MG, QD (ONCE DAILY)
     Route: 048
     Dates: start: 20180626, end: 20180710

REACTIONS (14)
  - Asthenia [Unknown]
  - Dysarthria [Unknown]
  - Diarrhoea [Unknown]
  - Pneumonia bacterial [Unknown]
  - Speech disorder [Unknown]
  - Blood creatinine decreased [Unknown]
  - Vomiting [Unknown]
  - Drooling [Unknown]
  - Blood creatinine increased [Unknown]
  - Thrombosis [Unknown]
  - Renal cell carcinoma recurrent [Unknown]
  - Decreased appetite [Unknown]
  - Hemiparesis [Unknown]
  - Anorectal discomfort [Unknown]

NARRATIVE: CASE EVENT DATE: 201807
